FAERS Safety Report 24969615 (Version 1)
Quarter: 2025Q1

REPORT INFORMATION
  Report Type: Spontaneous
  Country: US (occurrence: None)
  Receive Date: 20250214
  Receipt Date: 20250214
  Transmission Date: 20250409
  Serious: Yes (Hospitalization)
  Sender: FDA-CTU
  Company Number: None

PATIENT
  Age: 64 Year
  Sex: Female
  Weight: 89.5 kg

DRUGS (2)
  1. DOXORUBICIN HYDROCHLORIDE [Suspect]
     Active Substance: DOXORUBICIN HYDROCHLORIDE
  2. IFOSFAMIDE [Suspect]
     Active Substance: IFOSFAMIDE

REACTIONS (18)
  - Fall [None]
  - Vomiting [None]
  - Visual impairment [None]
  - Confusional state [None]
  - Food intolerance [None]
  - Abdominal pain [None]
  - Bacterial sepsis [None]
  - Biliary obstruction [None]
  - Cholelithiasis [None]
  - Hypertransaminasaemia [None]
  - Acute kidney injury [None]
  - Hypokalaemia [None]
  - Hypophosphataemia [None]
  - Troponin increased [None]
  - Viral infection [None]
  - Cholangitis [None]
  - Neutropenia [None]
  - Disease complication [None]

NARRATIVE: CASE EVENT DATE: 20250205
